FAERS Safety Report 24695675 (Version 1)
Quarter: 2024Q4

REPORT INFORMATION
  Report Type: Spontaneous
  Country: CZ (occurrence: CZ)
  Receive Date: 20241204
  Receipt Date: 20241204
  Transmission Date: 20250115
  Serious: Yes (Other)
  Sender: AUROBINDO
  Company Number: CZ-AUROBINDO-AUR-APL-2023-040534

PATIENT
  Age: 24 Year
  Sex: Male

DRUGS (7)
  1. OLANZAPINE [Suspect]
     Active Substance: OLANZAPINE
     Indication: Psychotic disorder
     Dosage: 25 MILLIGRAM, ONCE A DAY
     Route: 048
  2. OLANZAPINE [Suspect]
     Active Substance: OLANZAPINE
     Dosage: 20 MILLIGRAM, ONCE A DAY
     Route: 048
  3. OLANZAPINE [Suspect]
     Active Substance: OLANZAPINE
     Dosage: 1.5 MILLIGRAM, ONCE A DAY
     Route: 048
  4. OLANZAPINE [Suspect]
     Active Substance: OLANZAPINE
     Dosage: 5 MILLIGRAM, ONCE A DAY
     Route: 065
  5. CARIPRAZINE [Concomitant]
     Active Substance: CARIPRAZINE
     Indication: Psychotic disorder
     Dosage: 1.5 MILLIGRAM, ONCE A DAY
     Route: 065
  6. CARIPRAZINE [Concomitant]
     Active Substance: CARIPRAZINE
     Dosage: 4.5 MILLIGRAM
     Route: 065
  7. RISPERIDONE [Concomitant]
     Active Substance: RISPERIDONE
     Indication: Psychotic disorder
     Dosage: 1 MILLIGRAM, ONCE A DAY
     Route: 065

REACTIONS (10)
  - Hypoxia [Recovered/Resolved]
  - Abulia [Recovered/Resolved]
  - Affect lability [Recovered/Resolved]
  - Blunted affect [Recovered/Resolved]
  - Disturbance in attention [Recovered/Resolved]
  - Flat affect [Recovered/Resolved]
  - Emotional disorder [Recovered/Resolved]
  - Sedation [Recovered/Resolved]
  - Weight increased [Recovered/Resolved]
  - Product use in unapproved indication [Unknown]
